FAERS Safety Report 5574100-7 (Version None)
Quarter: 2007Q4

REPORT INFORMATION
  Report Type: 
  Country: None (occurrence: None)
  Receive Date: 20071221
  Receipt Date: 20071210
  Transmission Date: 20080405
  Serious: Yes (Other)
  Sender: FDA-Public Use
  Company Number: 17422

PATIENT
  Age: 23 Year
  Sex: Female

DRUGS (5)
  1. CARBOPLATIN [Suspect]
     Indication: OVARIAN CANCER
     Dosage: 5 AUC DAILY
     Dates: start: 20060101, end: 20060401
  2. TAXOL [Concomitant]
  3. ESTRADIOL VALERATE [Concomitant]
  4. LAMICTAL [Concomitant]
  5. LYRICA [Concomitant]

REACTIONS (6)
  - ARTHRALGIA [None]
  - BONE INFARCTION [None]
  - BONE PAIN [None]
  - GAIT DISTURBANCE [None]
  - MUSCULOSKELETAL PAIN [None]
  - NEUROPATHY [None]
